FAERS Safety Report 10561309 (Version 2)
Quarter: 2014Q4

REPORT INFORMATION
  Report Type: Report from Study
  Country: AR (occurrence: AR)
  Receive Date: 20141103
  Receipt Date: 20141209
  Transmission Date: 20150529
  Serious: Yes (Other)
  Sender: FDA-Public Use
  Company Number: AR-BAYER-2014-158088

PATIENT
  Age: 55 Year
  Sex: Male

DRUGS (5)
  1. DICLOFENAC [Concomitant]
     Active Substance: DICLOFENAC
     Dosage: 600 MG AFTER APPLICATIONS
     Dates: start: 201403, end: 201409
  2. DICLOFENAC [Concomitant]
     Active Substance: DICLOFENAC
     Dosage: 600 MG 3 HOURS BEFORE APPLICATION
     Dates: start: 201409
  3. BETAFERON [Suspect]
     Active Substance: INTERFERON BETA-1B
     Indication: MULTIPLE SCLEROSIS
     Dosage: UNK
  4. TEGRETOL [Concomitant]
     Active Substance: CARBAMAZEPINE
     Indication: TRIGEMINAL NEURALGIA
  5. BETAFERON [Suspect]
     Active Substance: INTERFERON BETA-1B
     Indication: MULTIPLE SCLEROSIS
     Dosage: UNK
     Route: 058
     Dates: start: 2006

REACTIONS (5)
  - Eye disorder [Recovered/Resolved]
  - Micturition urgency [Recovered/Resolved]
  - Loss of consciousness [Recovered/Resolved]
  - Irritability [Recovered/Resolved]
  - Nervousness [Recovered/Resolved]

NARRATIVE: CASE EVENT DATE: 201409
